FAERS Safety Report 16437202 (Version 6)
Quarter: 2019Q4

REPORT INFORMATION
  Report Type: Report from Study
  Country: None (occurrence: US)
  Receive Date: 20190615
  Receipt Date: 20191223
  Transmission Date: 20200122
  Serious: Yes (Hospitalization)
  Sender: FDA-Public Use
  Company Number: US-ABBVIE-19K-163-2816754-00

PATIENT
  Age: 68 Year
  Sex: Female
  Weight: 78.09 kg

DRUGS (2)
  1. HUMIRA [Suspect]
     Active Substance: ADALIMUMAB
     Route: 058
  2. HUMIRA [Suspect]
     Active Substance: ADALIMUMAB
     Indication: RHEUMATOID ARTHRITIS
     Route: 058
     Dates: start: 201808

REACTIONS (16)
  - Pain [Unknown]
  - Pain in extremity [Unknown]
  - Hypoaesthesia [Unknown]
  - Frustration tolerance decreased [Unknown]
  - Swelling [Unknown]
  - Joint stiffness [Unknown]
  - Fatigue [Unknown]
  - Therapeutic response shortened [Unknown]
  - Mobility decreased [Unknown]
  - Emotional disorder [Unknown]
  - Injection site erythema [Not Recovered/Not Resolved]
  - Peripheral swelling [Unknown]
  - Rheumatoid arthritis [Unknown]
  - Joint swelling [Unknown]
  - Injection site rash [Unknown]
  - Pain [Not Recovered/Not Resolved]

NARRATIVE: CASE EVENT DATE: 201808
